FAERS Safety Report 4591155-7 (Version None)
Quarter: 2005Q1

REPORT INFORMATION
  Report Type: 
  Country: None (occurrence: None)
  Receive Date: 20050223
  Receipt Date: 20050223
  Transmission Date: 20050727
  Serious: Yes (Hospitalization)
  Sender: FDA-Public Use
  Company Number: None

PATIENT
  Age: 61 Year
  Sex: Male
  Weight: 63.05 kg

DRUGS (4)
  1. CISPLATIN [Suspect]
     Indication: METASTATIC NEOPLASM
     Dosage: 53 MG Q WEEK 1,2,4,5  INTRAVENOUS
     Route: 042
     Dates: start: 20050131, end: 20050207
  2. CISPLATIN [Suspect]
     Indication: RECURRENT CANCER
     Dosage: 53 MG Q WEEK 1,2,4,5  INTRAVENOUS
     Route: 042
     Dates: start: 20050131, end: 20050207
  3. CPT-11 [Suspect]
     Indication: METASTATIC NEOPLASM
     Dosage: 89 MG  Q WEEK 1,2,4,5  INTRAVENOUS
     Route: 042
     Dates: start: 20050131, end: 20050207
  4. CPT-11 [Suspect]
     Indication: RECURRENT CANCER
     Dosage: 89 MG  Q WEEK 1,2,4,5  INTRAVENOUS
     Route: 042
     Dates: start: 20050131, end: 20050207

REACTIONS (10)
  - ASTHENIA [None]
  - DEHYDRATION [None]
  - DIARRHOEA [None]
  - NAUSEA [None]
  - ORAL CANDIDIASIS [None]
  - ORAL INTAKE REDUCED [None]
  - PYREXIA [None]
  - VERTIGO [None]
  - VOMITING [None]
  - WOUND INFECTION STAPHYLOCOCCAL [None]
